FAERS Safety Report 8089558-1 (Version None)
Quarter: 2012Q1

REPORT INFORMATION
  Report Type: 
  Country: None (occurrence: None)
  Receive Date: 20120128
  Receipt Date: 20110627
  Transmission Date: 20120608
  Serious: No
  Sender: FDA-Public Use
  Company Number: US-ABBOTT-11P-163-0733428-00

PATIENT
  Age: 70 Year
  Sex: Female

DRUGS (8)
  1. FOSAMAX [Concomitant]
     Indication: VITAMIN SUPPLEMENTATION
  2. LISINOPRIL [Concomitant]
     Indication: HYPERTENSION
  3. METHOTREXATE [Concomitant]
     Indication: RHEUMATOID ARTHRITIS
     Dosage: 7 TABS EVERY WEEK
  4. VITAMIN D [Concomitant]
     Indication: VITAMIN SUPPLEMENTATION
  5. HUMIRA [Suspect]
     Indication: RHEUMATOID ARTHRITIS
     Dates: start: 20110501
  6. FOLIC ACID [Concomitant]
     Indication: RHEUMATOID ARTHRITIS
  7. MEDROL [Concomitant]
     Indication: RHEUMATOID ARTHRITIS
  8. AMLODIPINE [Concomitant]
     Indication: HYPERTENSION

REACTIONS (5)
  - WRONG TECHNIQUE IN DRUG USAGE PROCESS [None]
  - INCORRECT DOSE ADMINISTERED [None]
  - INCORRECT ROUTE OF DRUG ADMINISTRATION [None]
  - INJECTION SITE HAEMORRHAGE [None]
  - MEDICATION ERROR [None]
